FAERS Safety Report 7833213-7 (Version None)
Quarter: 2011Q4

REPORT INFORMATION
  Report Type: 
  Country: None (occurrence: None)
  Receive Date: 20111024
  Receipt Date: 20111018
  Transmission Date: 20120403
  Serious: Yes (Other)
  Sender: FDA-Public Use
  Company Number: JP-PFIZER INC-2011242793

PATIENT
  Age: 86 Year
  Sex: Female

DRUGS (3)
  1. REVATIO [Suspect]
     Indication: PULMONARY HYPERTENSION
     Dosage: 10 MG 4 TIMES DAILY
     Dates: start: 20100710
  2. TRACLEER [Concomitant]
     Dosage: UNK
  3. DIOVAN [Concomitant]

REACTIONS (1)
  - RENAL IMPAIRMENT [None]
